FAERS Safety Report 10778655 (Version 1)
Quarter: 2015Q1

REPORT INFORMATION
  Report Type: Spontaneous
  Country: US (occurrence: US)
  Receive Date: 20150210
  Receipt Date: 20150210
  Transmission Date: 20150721
  Serious: No
  Sender: FDA-Public Use
  Company Number: US-009507513-1502USA003125

PATIENT
  Sex: Female

DRUGS (2)
  1. ASMANEX [Suspect]
     Active Substance: MOMETASONE FUROATE
     Indication: ASTHMA
     Dosage: 220 MICRO-G/TWO PUFFS BID
     Route: 055
     Dates: end: 20150202
  2. OMNARIS [Concomitant]
     Active Substance: CICLESONIDE

REACTIONS (2)
  - Depression [Unknown]
  - Adverse event [Unknown]

NARRATIVE: CASE EVENT DATE: 2014
